FAERS Safety Report 10077377 (Version 2)
Quarter: 2014Q2

REPORT INFORMATION
  Report Type: Spontaneous
  Country: US (occurrence: US)
  Receive Date: 20140414
  Receipt Date: 20140414
  Transmission Date: 20141212
  Serious: No
  Sender: FDA-Public Use
  Company Number: US-BANPHARM-20131437

PATIENT
  Age: 64 Year
  Sex: Female

DRUGS (5)
  1. ALEVE LIQUID GELS 220 MG [Suspect]
     Indication: BACK PAIN
     Dosage: 1 DF, PRN,
     Route: 048
     Dates: start: 2013, end: 20130615
  2. ORTHEOFLEX [Concomitant]
  3. ECOTRIN ASPIRIN 81 MG [Concomitant]
  4. CALCIUM + D [Concomitant]
  5. CENTRUM 50 PLUS MULTIVITAMIN [Concomitant]

REACTIONS (2)
  - Urticaria [Recovered/Resolved]
  - Rash macular [Recovered/Resolved]
